FAERS Safety Report 18273244 (Version 1)
Quarter: 2020Q3

REPORT INFORMATION
  Report Type: Spontaneous
  Country: SE (occurrence: SE)
  Receive Date: 20200916
  Receipt Date: 20200916
  Transmission Date: 20201103
  Serious: Yes (Other)
  Sender: FDA-Public Use
  Company Number: SE-TEVA-2020-SE-1827188

PATIENT
  Age: 16 Year
  Sex: Female
  Weight: 55 kg

DRUGS (1)
  1. DROSPIRENON OCH ETINYLESTRADIOL [Suspect]
     Active Substance: DROSPIRENONE\ETHINYL ESTRADIOL
     Dosage: YAZ, ESTRELEN, AND OTHER VARIATIONS ON COMBINATION PILLS WITH 0.02MG / 3MG ETHINYL ESTRADIOL / DROSP
     Dates: start: 20131130, end: 20200410

REACTIONS (7)
  - Vulvovaginal dryness [Recovered/Resolved with Sequelae]
  - Dry eye [Recovered/Resolved with Sequelae]
  - Depression [Recovered/Resolved with Sequelae]
  - Fungal infection [Recovered/Resolved with Sequelae]
  - Libido decreased [Recovered/Resolved with Sequelae]
  - Mood swings [Recovered/Resolved with Sequelae]
  - Vitamin B12 deficiency [Recovered/Resolved with Sequelae]

NARRATIVE: CASE EVENT DATE: 201403
